FAERS Safety Report 5676862-7 (Version None)
Quarter: 2008Q1

REPORT INFORMATION
  Report Type: 
  Country: None (occurrence: None)
  Receive Date: 20080324
  Receipt Date: 20080312
  Transmission Date: 20080703
  Serious: Yes (Other)
  Sender: FDA-Public Use
  Company Number: IT-ELI_LILLY_AND_COMPANY-IT200803003917

PATIENT
  Age: 45 Year

DRUGS (4)
  1. ZYPREXA [Suspect]
     Indication: BIPOLAR II DISORDER
     Dosage: 5 MG, UNK
     Route: 048
  2. COVERSYL [Concomitant]
  3. DIAZEPAM [Concomitant]
  4. CHLORIMIPRAMINE [Concomitant]

REACTIONS (1)
  - RENAL FAILURE [None]
